FAERS Safety Report 4750820-9 (Version None)
Quarter: 2005Q3

REPORT INFORMATION
  Report Type: 
  Country: None (occurrence: None)
  Receive Date: 20050822
  Receipt Date: 20050811
  Transmission Date: 20060218
  Serious: Yes (Hospitalization)
  Sender: FDA-Public Use
  Company Number: COV2-2005-00086

PATIENT
  Age: 73 Year
  Sex: Female

DRUGS (7)
  1. FOSRENOL [Suspect]
     Indication: HYPERPHOSPHATAEMIA
     Dosage: 250 MG, 3X/DAY; TID, ORAL
     Route: 048
     Dates: start: 20050524
  2. XANAX [Concomitant]
  3. EPOETIN ALFA [Concomitant]
  4. DIOVAN ^NOVARTIS^ (VALSARTAN) [Concomitant]
  5. SYNTHROID [Concomitant]
  6. ZEMPLAR [Concomitant]
  7. KOBALT-FERRLECIT FOR INJECTION (SODIUM-IRON-GLUCONATE COMPLEX, SODIUM- [Concomitant]

REACTIONS (10)
  - ARRHYTHMIA [None]
  - ASTHENIA [None]
  - BRADYCARDIA [None]
  - CONDITION AGGRAVATED [None]
  - DIZZINESS [None]
  - HYPERTENSION [None]
  - MYOCARDIAL INFARCTION [None]
  - SINUS BRADYCARDIA [None]
  - VENTRICULAR EXTRASYSTOLES [None]
  - VENTRICULAR HYPERTROPHY [None]
